FAERS Safety Report 9011415 (Version 2)
Quarter: 2013Q1

REPORT INFORMATION
  Report Type: Spontaneous
  Country: US (occurrence: US)
  Receive Date: 20130108
  Receipt Date: 20130211
  Transmission Date: 20140127
  Serious: No
  Sender: FDA-Public Use
  Company Number: US-VERTEX PHARMACEUTICALS INC.-2013-000215

PATIENT
  Age: 57 Year
  Sex: Female

DRUGS (5)
  1. INCIVEK [Suspect]
     Indication: HEPATITIS C
     Dosage: UNK
     Route: 048
     Dates: start: 2012, end: 201212
  2. PEGASYS [Suspect]
     Indication: HEPATITIS C
     Dosage: UNK
     Dates: start: 2012, end: 201212
  3. RIBAVIRIN [Suspect]
     Indication: HEPATITIS C
     Dosage: UNK
     Dates: start: 2012, end: 201212
  4. ASA [Concomitant]
  5. CORGARD [Concomitant]
     Indication: MITRAL VALVE PROLAPSE

REACTIONS (5)
  - Eosinophil count increased [Recovered/Resolved]
  - Drug eruption [Recovered/Resolved]
  - Thrombocytopenia [Recovered/Resolved]
  - Nausea [None]
  - Vomiting [None]
